FAERS Safety Report 24951841 (Version 1)
Quarter: 2025Q1

REPORT INFORMATION
  Report Type: Spontaneous
  Country: US (occurrence: None)
  Receive Date: 20250207
  Receipt Date: 20250207
  Transmission Date: 20250408
  Serious: Yes (Other)
  Sender: FDA-CTU
  Company Number: None

PATIENT
  Age: 42 Year
  Sex: Female
  Weight: 74.25 kg

DRUGS (1)
  1. HOMEOPATHICS [Suspect]
     Active Substance: HOMEOPATHICS
     Indication: Furuncle
     Dosage: OTHER STRENGTH : 11%;?OTHER QUANTITY : .63 OUNCE(S);?FREQUENCY : TWICE A DAY;?
     Route: 061
     Dates: start: 20250205, end: 20250205

REACTIONS (4)
  - Urticaria [None]
  - Pruritus [None]
  - Rash erythematous [None]
  - Skin burning sensation [None]

NARRATIVE: CASE EVENT DATE: 20250205
